FAERS Safety Report 5565270-5 (Version None)
Quarter: 2007Q4

REPORT INFORMATION
  Report Type: 
  Country: None (occurrence: None)
  Receive Date: 20071218
  Receipt Date: 20071211
  Transmission Date: 20080405
  Serious: Yes (Death)
  Sender: FDA-Public Use
  Company Number: US-TEVA-165279USA

PATIENT
  Age: 66 Year
  Sex: Male

DRUGS (8)
  1. CYCLOSPORINE [Suspect]
  2. METHYLPREDNISOLONE [Suspect]
     Indication: POLYMYOSITIS
     Route: 042
  3. PROPOFOL [Suspect]
     Indication: SEDATION
     Dosage: 30 UG/KG/MINUTE
  4. SIMVASTATIN [Suspect]
  5. COLCHICINE [Suspect]
  6. MYCOPHENOLATE MOFETIL [Concomitant]
  7. PREDNISONE [Concomitant]
  8. INSULIN [Concomitant]

REACTIONS (1)
  - MYOPATHY TOXIC [None]
